FAERS Safety Report 11654374 (Version 2)
Quarter: 2015Q4

REPORT INFORMATION
  Report Type: Report from Study
  Country: TR (occurrence: TR)
  Receive Date: 20151023
  Receipt Date: 20151110
  Transmission Date: 20160304
  Serious: Yes (Hospitalization, Other)
  Sender: FDA-Public Use
  Company Number: TR-ROCHE-1648372

PATIENT

DRUGS (2)
  1. BEVACIZUMAB [Suspect]
     Active Substance: BEVACIZUMAB
     Indication: COLORECTAL CANCER METASTATIC
     Dosage: OVER 30-90 MIN
     Route: 042
  2. CAPECITABINE. [Suspect]
     Active Substance: CAPECITABINE
     Indication: COLORECTAL CANCER METASTATIC
     Route: 065

REACTIONS (16)
  - Gastrointestinal haemorrhage [Unknown]
  - Anaemia [Unknown]
  - Hypertension [Unknown]
  - Neutropenia [Unknown]
  - Cerebrovascular accident [Unknown]
  - Acute kidney injury [Unknown]
  - Asthenia [Unknown]
  - Weight decreased [Unknown]
  - Palmar-plantar erythrodysaesthesia syndrome [Unknown]
  - Deep vein thrombosis [Unknown]
  - Epistaxis [Unknown]
  - Mucosal inflammation [Unknown]
  - Thrombocytopenia [Unknown]
  - Nausea [Unknown]
  - Diarrhoea [Unknown]
  - Renal failure [Unknown]
